FAERS Safety Report 14113505 (Version 1)
Quarter: 2017Q4

REPORT INFORMATION
  Report Type: Spontaneous
  Country: RU (occurrence: RU)
  Receive Date: 20171022
  Receipt Date: 20171022
  Transmission Date: 20180321
  Serious: Yes (Hospitalization, Disabling)
  Sender: FDA-Public Use
  Company Number: None

PATIENT
  Sex: Male
  Weight: 80 kg

DRUGS (4)
  1. POLIVITAMINS [Concomitant]
  2. VITAMINI RU BREAST TEA [Concomitant]
  3. LEVOFLOXACIN 500MG [Suspect]
     Active Substance: LEVOFLOXACIN
     Indication: PNEUMONIA
     Dosage: ?          QUANTITY:1 TABLET(S);?
     Route: 048
     Dates: start: 20170907, end: 20170922
  4. ACETYLCYSTEINE. [Concomitant]
     Active Substance: ACETYLCYSTEINE

REACTIONS (11)
  - Tenderness [None]
  - Oedema [None]
  - Anti-cyclic citrullinated peptide antibody positive [None]
  - Blood lactate dehydrogenase increased [None]
  - Tendon pain [None]
  - Pyrexia [None]
  - Muscle injury [None]
  - Polymyositis [None]
  - Aspartate aminotransferase increased [None]
  - Alanine aminotransferase increased [None]
  - Myalgia [None]

NARRATIVE: CASE EVENT DATE: 20171005
